FAERS Safety Report 6606646-4 (Version None)
Quarter: 2010Q1

REPORT INFORMATION
  Report Type: 
  Country: None (occurrence: None)
  Receive Date: 20100226
  Receipt Date: 20100218
  Transmission Date: 20100710
  Serious: Yes (Hospitalization)
  Sender: FDA-Public Use
  Company Number: FR-ABBOTT-10P-056-0627963-00

PATIENT
  Age: 44 Year
  Sex: Female

DRUGS (2)
  1. MONONAXY TABLETS [Suspect]
     Indication: TRACHEITIS
     Route: 048
  2. BETAMETHASONE [Concomitant]
     Indication: DRUG USE FOR UNKNOWN INDICATION

REACTIONS (3)
  - OFF LABEL USE [None]
  - TINNITUS [None]
  - VISUAL IMPAIRMENT [None]
